FAERS Safety Report 12875801 (Version 1)
Quarter: 2016Q4

REPORT INFORMATION
  Report Type: Spontaneous
  Country: US (occurrence: US)
  Receive Date: 20161024
  Receipt Date: 20161024
  Transmission Date: 20170207
  Serious: No
  Sender: FDA-Public Use
  Company Number: US-JAZZ-2016-US-015244

PATIENT
  Sex: Male

DRUGS (22)
  1. HYDROCODONE POLISTIREX AND CHLORPHENIRAMINE P [Concomitant]
  2. ADDERALL [Concomitant]
     Active Substance: AMPHETAMINE ASPARTATE\AMPHETAMINE SULFATE\DEXTROAMPHETAMINE SACCHARATE\DEXTROAMPHETAMINE SULFATE
  3. MONTELUKAST SODIUM. [Concomitant]
     Active Substance: MONTELUKAST SODIUM
  4. ZOLPIDEM TARTRATE. [Concomitant]
     Active Substance: ZOLPIDEM TARTRATE
  5. XYREM [Suspect]
     Active Substance: SODIUM OXYBATE
     Dosage: DOSE ADJUSTMENTS
     Route: 048
     Dates: start: 201501, end: 201503
  6. DEXILANT [Concomitant]
     Active Substance: DEXLANSOPRAZOLE
  7. RANITIDINE. [Concomitant]
     Active Substance: RANITIDINE
  8. OMEPRAZOLE. [Concomitant]
     Active Substance: OMEPRAZOLE
  9. IBUPROFEN. [Concomitant]
     Active Substance: IBUPROFEN
  10. XYREM [Suspect]
     Active Substance: SODIUM OXYBATE
     Indication: NARCOLEPSY
     Dosage: 2.25 G, BID
     Route: 048
     Dates: start: 201408, end: 201501
  11. AYR SALINE [Concomitant]
  12. METOPROLOL SUCCINATE. [Concomitant]
     Active Substance: METOPROLOL SUCCINATE
  13. MUPIROCIN. [Concomitant]
     Active Substance: MUPIROCIN
  14. XYREM [Suspect]
     Active Substance: SODIUM OXYBATE
     Dosage: 4.5 G, BID
     Route: 048
     Dates: start: 201503
  15. BUSPIRONE HCL [Concomitant]
     Active Substance: BUSPIRONE HYDROCHLORIDE
  16. NORVASC [Concomitant]
     Active Substance: AMLODIPINE BESYLATE
  17. RAMIPRIL. [Concomitant]
     Active Substance: RAMIPRIL
  18. HYDROCODONE BITARTRATE AND ACETAMINOPHEN [Concomitant]
     Active Substance: ACETAMINOPHEN\HYDROCODONE BITARTRATE
  19. FLUTICASONE PROPRIONATE [Concomitant]
     Active Substance: FLUTICASONE PROPIONATE
  20. ALTACE [Concomitant]
     Active Substance: RAMIPRIL
  21. SIMVASTATIN. [Concomitant]
     Active Substance: SIMVASTATIN
  22. HYDROCODONE BITARTRATE AND HOMATROPINE METHYL [Concomitant]

REACTIONS (1)
  - Influenza [Unknown]
